FAERS Safety Report 17069119 (Version 2)
Quarter: 2019Q4

REPORT INFORMATION
  Report Type: Spontaneous
  Country: US (occurrence: US)
  Receive Date: 20191124
  Receipt Date: 20191127
  Transmission Date: 20200122
  Serious: No
  Sender: FDA-Public Use
  Company Number: US-JNJFOC-20191125035

PATIENT
  Sex: Male
  Weight: 84.9 kg

DRUGS (1)
  1. MENS ROGAINE EXTRA STRENGTH [Suspect]
     Active Substance: MINOXIDIL
     Indication: ALOPECIA
     Dosage: WHAT IS LISTED ON THE BOX, ONCE IN THE MORNING BEFORE WORK, ANOTHER TIME SOME TIME IN THE AFTERNOON
     Route: 061

REACTIONS (1)
  - Application site pruritus [Recovered/Resolved]
